FAERS Safety Report 18329342 (Version 3)
Quarter: 2020Q4

REPORT INFORMATION
  Report Type: Spontaneous
  Country: US (occurrence: US)
  Receive Date: 20200930
  Receipt Date: 20201104
  Transmission Date: 20210113
  Serious: No
  Sender: FDA-Public Use
  Company Number: US-GLAXOSMITHKLINE-US2020189779

PATIENT
  Age: 31 Year
  Sex: Female

DRUGS (1)
  1. BENLYSTA [Suspect]
     Active Substance: BELIMUMAB
     Indication: SYSTEMIC LUPUS ERYTHEMATOSUS
     Dosage: 200 MG/ML, WE
     Route: 065
     Dates: start: 20200907

REACTIONS (6)
  - Gastrointestinal inflammation [Unknown]
  - Product administered at inappropriate site [Unknown]
  - Product complaint [Unknown]
  - Injection site haemorrhage [Recovered/Resolved]
  - Night sweats [Not Recovered/Not Resolved]
  - Underdose [Unknown]

NARRATIVE: CASE EVENT DATE: 20200920
